FAERS Safety Report 8156584-3 (Version None)
Quarter: 2012Q1

REPORT INFORMATION
  Report Type: 
  Country: None (occurrence: None)
  Receive Date: 20120103
  Receipt Date: 20111004
  Transmission Date: 20120608
  Serious: No
  Sender: FDA-Public Use
  Company Number: AE-2011-002041

PATIENT
  Age: 45 Year
  Sex: Male
  Weight: 113.3993 kg

DRUGS (5)
  1. INCIVEK [Suspect]
     Dosage: (750 MG)
     Dates: start: 20110928
  2. LACTULOSE [Concomitant]
  3. PEGASYS [Concomitant]
  4. OXYCODONE HCL [Concomitant]
  5. RIBAVIRIN [Concomitant]

REACTIONS (4)
  - NAUSEA [None]
  - FATIGUE [None]
  - RASH PRURITIC [None]
  - HAEMATOCHEZIA [None]
